FAERS Safety Report 4969802-7 (Version None)
Quarter: 2006Q2

REPORT INFORMATION
  Report Type: 
  Country: None (occurrence: None)
  Receive Date: 20060411
  Receipt Date: 20060127
  Transmission Date: 20061013
  Serious: Yes (Hospitalization, Disabling)
  Sender: FDA-Public Use
  Company Number: US-MERCK-0602USA00050

PATIENT
  Age: 62 Year
  Sex: Male
  Weight: 114 kg

DRUGS (3)
  1. VIOXX [Suspect]
     Indication: PAIN
     Route: 048
     Dates: start: 19990601, end: 20020101
  2. VIOXX [Suspect]
     Indication: ARTHRITIS
     Route: 048
     Dates: start: 19990601, end: 20020101
  3. ASPIRIN [Concomitant]
     Route: 048

REACTIONS (4)
  - CHRONIC FATIGUE SYNDROME [None]
  - MYOCARDIAL INFARCTION [None]
  - POST-TRAUMATIC STRESS DISORDER [None]
  - PRESCRIBED OVERDOSE [None]
